FAERS Safety Report 12282781 (Version 1)
Quarter: 2016Q2

REPORT INFORMATION
  Report Type: Spontaneous
  Country: US (occurrence: US)
  Receive Date: 20160419
  Receipt Date: 20160419
  Transmission Date: 20160815
  Serious: No
  Sender: FDA-Public Use
  Company Number: US-MDT-ADR-2016-00710

PATIENT
  Age: 48 Year
  Sex: Female

DRUGS (2)
  1. BACLOFEN. [Suspect]
     Active Substance: BACLOFEN
     Dosage: 120 MCG/DAY
     Route: 037
     Dates: end: 20160414
  2. BACLOFEN. [Suspect]
     Active Substance: BACLOFEN
     Dosage: 140 MCG/DAY
     Route: 037
     Dates: start: 20160414

REACTIONS (2)
  - Muscle tightness [Unknown]
  - Agitation [Unknown]

NARRATIVE: CASE EVENT DATE: 201604
